FAERS Safety Report 5734822-1 (Version None)
Quarter: 2008Q2

REPORT INFORMATION
  Report Type: 
  Country: None (occurrence: None)
  Receive Date: 20080512
  Receipt Date: 20080430
  Transmission Date: 20081010
  Serious: Yes (Death, Hospitalization)
  Sender: FDA-Public Use
  Company Number: ES-ROCHE-561875

PATIENT
  Age: 67 Year
  Sex: Male

DRUGS (1)
  1. VESANOID [Suspect]
     Dosage: FORM SOFT CAPSULE
     Route: 048
     Dates: start: 20070703, end: 20070718

REACTIONS (5)
  - BRONCHOPULMONARY ASPERGILLOSIS [None]
  - DYSPNOEA [None]
  - LUNG INFILTRATION [None]
  - PYREXIA [None]
  - RETINOIC ACID SYNDROME [None]
